FAERS Safety Report 17433881 (Version 1)
Quarter: 2020Q1

REPORT INFORMATION
  Report Type: Spontaneous
  Country: US (occurrence: US)
  Receive Date: 20200218
  Receipt Date: 20200218
  Transmission Date: 20200409
  Serious: No
  Sender: FDA-Public Use
  Company Number: None

PATIENT
  Age: 67 Year
  Sex: Female
  Weight: 54.9 kg

DRUGS (6)
  1. HEPARIN INJECTION [Suspect]
     Active Substance: HEPARIN SODIUM
     Indication: ANTICOAGULANT THERAPY
     Dosage: ?          OTHER FREQUENCY:ONCE AT 13:10;?
     Dates: start: 20200128, end: 20200128
  2. BIVALIRUDIN. [Concomitant]
     Active Substance: BIVALIRUDIN
     Dates: start: 20200128, end: 20200128
  3. EPTIFIBATIDE. [Concomitant]
     Active Substance: EPTIFIBATIDE
     Dates: start: 20200128, end: 20200128
  4. HEPARIN INJECTION [Suspect]
     Active Substance: HEPARIN SODIUM
     Indication: CATHETERISATION CARDIAC
     Dosage: ?          OTHER FREQUENCY:ONCE AT 13:10;?
     Dates: start: 20200128, end: 20200128
  5. HEPARIN INJECTION [Suspect]
     Active Substance: HEPARIN SODIUM
     Indication: CATHETERISATION CARDIAC
     Dosage: ?          OTHER FREQUENCY:ONCE AT 12:57;?
     Route: 040
     Dates: start: 20200129, end: 20200129
  6. HEPARIN INJECTION [Suspect]
     Active Substance: HEPARIN SODIUM
     Indication: ANTICOAGULANT THERAPY
     Dosage: ?          OTHER FREQUENCY:ONCE AT 12:57;?
     Route: 040
     Dates: start: 20200129, end: 20200129

REACTIONS (4)
  - Coagulation time [None]
  - Therapeutic response decreased [None]
  - Manufacturing materials issue [None]
  - Embolism [None]

NARRATIVE: CASE EVENT DATE: 20200129
